FAERS Safety Report 10052073 (Version 3)
Quarter: 2015Q3

REPORT INFORMATION
  Report Type: Report from Study
  Country: VE (occurrence: VE)
  Receive Date: 20140402
  Receipt Date: 20150824
  Transmission Date: 20151125
  Serious: Yes (Other)
  Sender: FDA-Public Use
  Company Number: VE-ROCHE-1374671

PATIENT
  Age: 42 Year
  Sex: Female

DRUGS (3)
  1. XOLAIR [Suspect]
     Active Substance: OMALIZUMAB
     Route: 058
     Dates: start: 201401
  2. XOLAIR [Suspect]
     Active Substance: OMALIZUMAB
     Indication: ASTHMA
     Dosage: DOCTOR PRESCRIBED DOSE OF 450MG (3 AMPOULES) MONTHLY. LAST DOSE WAS GIVEN AS 2 AMPOULES (300MG) FOLL
     Route: 058
     Dates: start: 201311
  3. XOLAIR [Suspect]
     Active Substance: OMALIZUMAB
     Route: 058
     Dates: end: 201404

REACTIONS (5)
  - Maternal exposure during pregnancy [Unknown]
  - Malaise [Unknown]
  - Asphyxia [Not Recovered/Not Resolved]
  - Feeling abnormal [Not Recovered/Not Resolved]
  - Asthma [Not Recovered/Not Resolved]

NARRATIVE: CASE EVENT DATE: 201402
